FAERS Safety Report 8818916 (Version 1)
Quarter: 2012Q4

REPORT INFORMATION
  Report Type: Spontaneous
  Country: IT (occurrence: None)
  Receive Date: 20121002
  Receipt Date: 20121002
  Transmission Date: 20130627
  Serious: Yes (Life-Threatening)
  Sender: FDA-Public Use
  Company Number: FK201202551

PATIENT
  Age: 78 Year
  Sex: Male

DRUGS (3)
  1. PROPOFOL [Suspect]
     Indication: GENERAL ANAESTHESIA
     Route: 042
     Dates: start: 20120821, end: 20120821
  2. FIDATO [Suspect]
     Indication: ANTIBIOTIC PROPHYLAXIS
     Route: 042
     Dates: start: 20120821, end: 20120821
  3. SUCCINYLCHOLINE CHLORIDE [Suspect]
     Indication: GENERAL ANAESTHESIA
     Route: 042
     Dates: start: 20120821, end: 20120821

REACTIONS (4)
  - Hypotension [None]
  - Anaphylactic shock [None]
  - No therapeutic response [None]
  - Therapeutic response decreased [None]
